FAERS Safety Report 8607701-X (Version None)
Quarter: 2012Q3

REPORT INFORMATION
  Report Type: 
  Country: None (occurrence: None)
  Receive Date: 20120821
  Receipt Date: 20120815
  Transmission Date: 20120928
  Serious: Yes (Other)
  Sender: FDA-Public Use
  Company Number: US-PFIZER INC-2012200265

PATIENT
  Sex: Female

DRUGS (1)
  1. CHANTIX [Suspect]
     Indication: SMOKING CESSATION THERAPY
     Dosage: 0.5 MG, 1X/DAY
     Route: 048
     Dates: start: 20120601, end: 20120701

REACTIONS (13)
  - PERSONALITY CHANGE [None]
  - MENTAL IMPAIRMENT [None]
  - MALAISE [None]
  - FEELING ABNORMAL [None]
  - AGGRESSION [None]
  - DEPRESSION [None]
  - ANXIETY [None]
  - RESTLESSNESS [None]
  - ABNORMAL BEHAVIOUR [None]
  - NAUSEA [None]
  - CONFUSIONAL STATE [None]
  - ANGER [None]
  - HOSTILITY [None]
